FAERS Safety Report 20223081 (Version 2)
Quarter: 2022Q1

REPORT INFORMATION
  Report Type: Other
  Country: US (occurrence: None)
  Receive Date: 20211223
  Receipt Date: 20220112
  Transmission Date: 20220424
  Serious: Yes (Other)
  Sender: FDA-Public Use
  Company Number: US-ROCHE-2984843

PATIENT
  Age: 52 Year
  Sex: Female
  Weight: 52.210 kg

DRUGS (3)
  1. XOLAIR [Suspect]
     Active Substance: OMALIZUMAB
     Indication: Urticaria
     Route: 058
     Dates: start: 20211214
  2. XOLAIR [Suspect]
     Active Substance: OMALIZUMAB
     Indication: Idiopathic urticaria
  3. LORAZEPAM [Concomitant]
     Active Substance: LORAZEPAM
     Indication: Anaphylaxis prophylaxis
     Route: 048

REACTIONS (16)
  - Noninfective encephalitis [Unknown]
  - Angina pectoris [Unknown]
  - Dysphonia [Recovered/Resolved]
  - Palpitations [Recovered/Resolved]
  - Vertigo [Unknown]
  - Tremor [Unknown]
  - Dizziness [Unknown]
  - Eye pruritus [Not Recovered/Not Resolved]
  - Cough [Not Recovered/Not Resolved]
  - Sneezing [Not Recovered/Not Resolved]
  - Rhinorrhoea [Not Recovered/Not Resolved]
  - Off label use [Unknown]
  - Dizziness [Not Recovered/Not Resolved]
  - Throat tightness [Not Recovered/Not Resolved]
  - Burning sensation [Not Recovered/Not Resolved]
  - Cough [Not Recovered/Not Resolved]

NARRATIVE: CASE EVENT DATE: 20211214
